FAERS Safety Report 14763390 (Version 3)
Quarter: 2018Q2

REPORT INFORMATION
  Report Type: Report from Study
  Country: CA (occurrence: CA)
  Receive Date: 20180416
  Receipt Date: 20180430
  Transmission Date: 20180711
  Serious: Yes (Hospitalization, Other)
  Sender: FDA-Public Use
  Company Number: PHHY2018CA061960

PATIENT
  Age: 53 Year
  Sex: Female

DRUGS (4)
  1. OCRELIZUMAB. [Suspect]
     Active Substance: OCRELIZUMAB
     Dosage: 2 X 300 MG, UNK
     Route: 065
  2. OCRELIZUMAB. [Suspect]
     Active Substance: OCRELIZUMAB
     Indication: PRODUCT USED FOR UNKNOWN INDICATION
     Dosage: 300 MG, UNK
     Route: 041
     Dates: start: 20180319
  3. GILENYA [Suspect]
     Active Substance: FINGOLIMOD HYDROCHLORIDE
     Indication: PRODUCT USED FOR UNKNOWN INDICATION
     Dosage: UNK
     Route: 065
     Dates: start: 20140814, end: 20171220
  4. OCRELIZUMAB. [Suspect]
     Active Substance: OCRELIZUMAB
     Dosage: 300 MG, UNK
     Route: 041
     Dates: start: 20180403

REACTIONS (14)
  - Monoplegia [Recovering/Resolving]
  - Intermittent claudication [Unknown]
  - Uhthoff^s phenomenon [Not Recovered/Not Resolved]
  - Pyrexia [Recovering/Resolving]
  - Gait disturbance [Not Recovered/Not Resolved]
  - Fine motor skill dysfunction [Not Recovered/Not Resolved]
  - Limb discomfort [Recovering/Resolving]
  - Lymphocyte count decreased [Recovering/Resolving]
  - Progressive multifocal leukoencephalopathy [Not Recovered/Not Resolved]
  - Neurological symptom [Not Recovered/Not Resolved]
  - Aphasia [Recovering/Resolving]
  - Dysarthria [Recovering/Resolving]
  - Malaise [Unknown]
  - JC virus CSF test positive [Unknown]

NARRATIVE: CASE EVENT DATE: 201709
